FAERS Safety Report 16423558 (Version 2)
Quarter: 2019Q3

REPORT INFORMATION
  Report Type: Spontaneous
  Country: EG (occurrence: EG)
  Receive Date: 20190613
  Receipt Date: 20190731
  Transmission Date: 20191004
  Serious: Yes (Other)
  Sender: FDA-Public Use
  Company Number: EG-ROCHE-2334508

PATIENT
  Sex: Male

DRUGS (2)
  1. BENDAMUSTINE [Suspect]
     Active Substance: BENDAMUSTINE
     Indication: LYMPHOCYTIC LEUKAEMIA
     Route: 065
  2. GAZYVARO [Suspect]
     Active Substance: OBINUTUZUMAB
     Indication: LYMPHOCYTIC LEUKAEMIA
     Dosage: ON DAYS 1, 8 AND 15.
     Route: 042

REACTIONS (4)
  - Bronchospasm [Unknown]
  - Dysphagia [Unknown]
  - Injection site rash [Recovered/Resolved]
  - Pharyngeal oedema [Unknown]
